FAERS Safety Report 23046764 (Version 1)
Quarter: 2023Q4

REPORT INFORMATION
  Report Type: Spontaneous
  Country: FR (occurrence: FR)
  Receive Date: 20231009
  Receipt Date: 20231009
  Transmission Date: 20240110
  Serious: Yes (Death)
  Sender: FDA-Public Use
  Company Number: None

PATIENT
  Age: 76 Year
  Sex: Female

DRUGS (1)
  1. ENHERTU [Suspect]
     Active Substance: FAM-TRASTUZUMAB DERUXTECAN-NXKI
     Indication: Gastric cancer
     Dosage: UNK (1ST DOSE)
     Route: 065
     Dates: start: 20230911, end: 20230911

REACTIONS (2)
  - General physical health deterioration [Fatal]
  - Abdominal pain [Fatal]

NARRATIVE: CASE EVENT DATE: 20230920
